FAERS Safety Report 8866146 (Version 1)
Quarter: 2012Q4

REPORT INFORMATION
  Report Type: 
  Country: US (occurrence: US)
  Receive Date: 20121025
  Receipt Date: 20121025
  Transmission Date: 20130627
  Serious: Yes (Hospitalization)
  Sender: FDA-Public Use
  Company Number: US-CELGENEUS-163-21880-12102152

PATIENT
  Age: 56 Year
  Sex: Male

DRUGS (1)
  1. REVLIMID [Suspect]
     Indication: MDS
     Dosage: 10 Milligram
     Route: 048
     Dates: start: 201209

REACTIONS (3)
  - Musculoskeletal disorder [Unknown]
  - Constipation [Unknown]
  - Full blood count decreased [Unknown]
